FAERS Safety Report 8864432 (Version 1)
Quarter: 2012Q4

REPORT INFORMATION
  Report Type: 
  Country: BE (occurrence: DE)
  Receive Date: 20121024
  Receipt Date: 20121024
  Transmission Date: 20130627
  Serious: Yes (Hospitalization, Other)
  Sender: FDA-Public Use
  Company Number: BE-WATSON-2012-18440

PATIENT
  Age: 35 Year
  Sex: Female

DRUGS (8)
  1. FERROUS SULFATE [Suspect]
     Indication: PRODUCT USED FOR UNKNOWN INDICATION
     Dosage: unknown quanity
     Route: 048
     Dates: start: 20120728
  2. DOXYCYCLINE [Suspect]
     Indication: PRODUCT USED FOR UNKNOWN INDICATION
     Dosage: Unknown quanity
     Route: 048
     Dates: start: 20120728
  3. FLUOXETINE HYDROCHLORIDE (UNKNOWN) [Suspect]
     Indication: PRODUCT USED FOR UNKNOWN INDICATION
     Dosage: (20 mg); 40 tablets, total amount: 800 mg
     Route: 048
     Dates: start: 20120728
  4. PARACETAMOL [Suspect]
     Indication: PRODUCT USED FOR UNKNOWN INDICATION
     Dosage: (500 mg); 8 tablets, total amount: 4000 mg
     Route: 048
     Dates: start: 20120728
  5. SEROQUEL [Suspect]
     Indication: PRODUCT USED FOR UNKNOWN INDICATION
     Dosage: 25 mg
     Route: 048
     Dates: start: 20120728
  6. L-THYROXIN [Suspect]
     Indication: PRODUCT USED FOR UNKNOWN INDICATION
     Dosage: (75); 20 tablets, total amount: 1.5 mg
     Route: 048
     Dates: start: 20120728
  7. IBUFLAM [Suspect]
     Indication: PRODUCT USED FOR UNKNOWN INDICATION
     Dosage: (400 mg); 10 tablets, total amount: 4000 mg
     Route: 048
     Dates: start: 20120728
  8. VIGANTOLETTEN [Suspect]
     Indication: PRODUCT USED FOR UNKNOWN INDICATION
     Dosage: (1000 mg); 20 tablets, total amount: 20,000 mg
     Route: 048
     Dates: start: 20120728

REACTIONS (3)
  - Suicide attempt [Unknown]
  - Somnolence [Unknown]
  - Incorrect dose administered [None]
